FAERS Safety Report 7238914-X (Version None)
Quarter: 2011Q1

REPORT INFORMATION
  Report Type: 
  Country: None (occurrence: None)
  Receive Date: 20110113
  Receipt Date: 20101230
  Transmission Date: 20110831
  Serious: Yes (Hospitalization)
  Sender: FDA-Public Use
  Company Number: 2010SP028437

PATIENT
  Age: 23 Year
  Sex: Female
  Weight: 99.7913 kg

DRUGS (2)
  1. NUVARING [Suspect]
     Indication: CONTRACEPTION
     Dates: start: 20030101, end: 20061101
  2. NUVARING [Suspect]
     Indication: CONTRACEPTION
     Dates: start: 20060301, end: 20061101

REACTIONS (11)
  - PREGNANCY [None]
  - PREGNANCY WITH CONTRACEPTIVE DEVICE [None]
  - LOSS OF EMPLOYMENT [None]
  - ESCHERICHIA TEST POSITIVE [None]
  - ASTHENIA [None]
  - DRUG EXPOSURE DURING PREGNANCY [None]
  - GONORRHOEA [None]
  - PULMONARY EMBOLISM [None]
  - CYSTITIS [None]
  - ARTHRALGIA [None]
  - DRUG ABUSE [None]
